FAERS Safety Report 13188108 (Version 2)
Quarter: 2017Q1

REPORT INFORMATION
  Report Type: Other
  Country: US (occurrence: US)
  Receive Date: 20170206
  Receipt Date: 20170228
  Transmission Date: 20170428
  Serious: Yes (Hospitalization, Other)
  Sender: FDA-Public Use
  Company Number: US-ACORDA-ACO_133188_2017

PATIENT
  Age: 66 Year
  Sex: Female

DRUGS (2)
  1. AMPYRA [Suspect]
     Active Substance: DALFAMPRIDINE
     Indication: MULTIPLE SCLEROSIS
     Dosage: 10 MG, BID
     Route: 048
     Dates: start: 20161221
  2. AMPYRA [Suspect]
     Active Substance: DALFAMPRIDINE
     Indication: GAIT DISTURBANCE
     Dosage: 10 MG, Q 12 HRS
     Route: 048
     Dates: start: 20120816

REACTIONS (8)
  - Fall [Unknown]
  - Trigeminal neuralgia [Recovered/Resolved]
  - Head injury [Unknown]
  - Spinal fracture [Recovering/Resolving]
  - Concussion [Recovered/Resolved]
  - Vertigo [Recovered/Resolved]
  - Fall [Unknown]
  - Nerve compression [Recovered/Resolved]

NARRATIVE: CASE EVENT DATE: 2014
